FAERS Safety Report 9107253 (Version 4)
Quarter: 2013Q4

REPORT INFORMATION
  Report Type: Spontaneous
  Country: GR (occurrence: GR)
  Receive Date: 20130221
  Receipt Date: 20131111
  Transmission Date: 20140711
  Serious: Yes (Other)
  Sender: FDA-Public Use
  Company Number: GR-JNJFOC-20130209956

PATIENT
  Age: 42 Year
  Sex: Male

DRUGS (2)
  1. REMICADE [Suspect]
     Indication: ANKYLOSING SPONDYLITIS
     Dosage: STARTED 6-7 YEARS AGO
     Route: 042
  2. ANTIINFLAMMATORY MEDICATION [Concomitant]
     Dosage: OCCASIONALLY IF REQUIRED
     Route: 065

REACTIONS (1)
  - Lupus-like syndrome [Recovering/Resolving]
